FAERS Safety Report 16836855 (Version 1)
Quarter: 2019Q3

REPORT INFORMATION
  Report Type: Report from Study
  Country: US (occurrence: US)
  Receive Date: 20190922
  Receipt Date: 20190922
  Transmission Date: 20191005
  Serious: Yes (Death, Other)
  Sender: FDA-Public Use
  Company Number: US-CELGENEUS-USA-2015022397

PATIENT

DRUGS (4)
  1. RITUXIMAB. [Suspect]
     Active Substance: RITUXIMAB
     Dosage: 53.5714 MILLIGRAM/SQ. METER
     Route: 041
  2. RITUXIMAB. [Suspect]
     Active Substance: RITUXIMAB
     Indication: NON-HODGKIN^S LYMPHOMA
     Route: 041
  3. REVLIMID [Suspect]
     Active Substance: LENALIDOMIDE
     Indication: NON-HODGKIN^S LYMPHOMA
     Dosage: 20 MILLIGRAM
     Route: 048
  4. REVLIMID [Suspect]
     Active Substance: LENALIDOMIDE
     Dosage: 20 MILLIGRAM
     Route: 048

REACTIONS (19)
  - Oedema [Unknown]
  - Rash [Unknown]
  - Constipation [Unknown]
  - Non-Hodgkin^s lymphoma [Unknown]
  - Death [Fatal]
  - Fatigue [Unknown]
  - Myalgia [Unknown]
  - Upper respiratory tract infection [Unknown]
  - Nausea [Unknown]
  - Cough [Unknown]
  - Neuropathy peripheral [Unknown]
  - Eye irritation [Unknown]
  - Mucosal inflammation [Unknown]
  - Vomiting [Unknown]
  - Infusion related reaction [Unknown]
  - Febrile neutropenia [Unknown]
  - Thyroid disorder [Unknown]
  - Anaemia [Unknown]
  - Plasma cell myeloma [Unknown]
